FAERS Safety Report 15485754 (Version 1)
Quarter: 2018Q4

REPORT INFORMATION
  Report Type: Spontaneous
  Country: FR (occurrence: FR)
  Receive Date: 20181010
  Receipt Date: 20181010
  Transmission Date: 20190205
  Serious: Yes (Hospitalization, Other)
  Sender: FDA-Public Use
  Company Number: FR-BRISTOL-MYERS SQUIBB COMPANY-BMS-2018-091517

PATIENT
  Age: 69 Year
  Sex: Male
  Weight: 58 kg

DRUGS (3)
  1. DOLIPRANE [Concomitant]
     Active Substance: ACETAMINOPHEN
     Indication: PRODUCT USED FOR UNKNOWN INDICATION
     Route: 065
  2. OPDIVO [Suspect]
     Active Substance: NIVOLUMAB
     Indication: LUNG NEOPLASM MALIGNANT
     Dosage: 240MG, 1 CYCLICAL
     Route: 042
     Dates: start: 20180425
  3. ZOMETA [Suspect]
     Active Substance: ZOLEDRONIC ACID
     Indication: BONE NEOPLASM
     Dosage: 4G 1 CYCLICAL
     Route: 042
     Dates: start: 20180201, end: 201808

REACTIONS (1)
  - Osteonecrosis of jaw [Recovered/Resolved with Sequelae]
